FAERS Safety Report 12531988 (Version 2)
Quarter: 2016Q3

REPORT INFORMATION
  Report Type: Report from Study
  Country: PH (occurrence: PH)
  Receive Date: 20160706
  Receipt Date: 20160708
  Transmission Date: 20161109
  Serious: Yes (Hospitalization, Other)
  Sender: FDA-Public Use
  Company Number: PH-TAKEDA-2016MPI006130

PATIENT
  Age: 27 Year
  Sex: Male

DRUGS (2)
  1. VELCADE [Suspect]
     Active Substance: BORTEZOMIB
     Indication: PLASMA CELL MYELOMA
     Dosage: UNK
     Route: 065
     Dates: start: 20160624
  2. VELCADE [Suspect]
     Active Substance: BORTEZOMIB
     Dosage: 2.34 MG, UNK
     Route: 065

REACTIONS (3)
  - Splenomegaly [Unknown]
  - Pyrexia [Unknown]
  - Spinal disorder [Recovering/Resolving]

NARRATIVE: CASE EVENT DATE: 20160702
